FAERS Safety Report 24688421 (Version 2)
Quarter: 2024Q4

REPORT INFORMATION
  Report Type: Report from Study
  Country: CA (occurrence: CA)
  Receive Date: 20241202
  Receipt Date: 20241216
  Transmission Date: 20250115
  Serious: Yes (Hospitalization)
  Sender: ABBVIE
  Company Number: CA-ABBVIE-6000845

PATIENT
  Age: 61 Year
  Sex: Male

DRUGS (2)
  1. SKYRIZI [Suspect]
     Active Substance: RISANKIZUMAB-RZAA
     Indication: Crohn^s disease
     Dosage: 3 DOSES
     Route: 042
     Dates: start: 20241010
  2. SKYRIZI [Suspect]
     Active Substance: RISANKIZUMAB-RZAA
     Indication: Crohn^s disease
     Route: 042

REACTIONS (17)
  - Yellow skin [Unknown]
  - Gastrointestinal disorder [Unknown]
  - Pruritus [Unknown]
  - Weight decreased [Unknown]
  - Asthenia [Unknown]
  - Abdominal distension [Unknown]
  - Jaundice [Not Recovered/Not Resolved]
  - Chromaturia [Unknown]
  - Tinnitus [Unknown]
  - Arthralgia [Unknown]
  - Myalgia [Unknown]
  - Blood bilirubin increased [Unknown]
  - Blood alkaline phosphatase increased [Unknown]
  - Alanine aminotransferase increased [Unknown]
  - Aspartate aminotransferase increased [Unknown]
  - Ocular icterus [Unknown]
  - Diarrhoea [Unknown]

NARRATIVE: CASE EVENT DATE: 20240101
